FAERS Safety Report 7679649-9 (Version None)
Quarter: 2011Q3

REPORT INFORMATION
  Report Type: 
  Country: None (occurrence: None)
  Receive Date: 20110812
  Receipt Date: 20110803
  Transmission Date: 20111222
  Serious: Yes (Hospitalization)
  Sender: FDA-Public Use
  Company Number: IT-ELI_LILLY_AND_COMPANY-IT201108001507

PATIENT
  Sex: Female

DRUGS (7)
  1. DEXAMETHASONE SODIUM PHOSPHATE [Concomitant]
     Dosage: UNK, UNKNOWN
     Route: 065
  2. INDOXEN [Concomitant]
     Dosage: UNK, UNKNOWN
     Route: 065
  3. CARBOPLATIN [Concomitant]
     Indication: BREAST CANCER
     Dosage: 700 MG/TOTAL
     Route: 042
     Dates: start: 20101120, end: 20101120
  4. RABEPRAZOLE SODIUM [Concomitant]
     Dosage: UNK, UNKNOWN
     Route: 065
  5. GEMZAR [Suspect]
     Indication: BREAST CANCER
     Dosage: 2 G/TOTAL
     Route: 042
     Dates: start: 20101102, end: 20101127
  6. ZOLPIDEM [Concomitant]
     Dosage: UNK, UNKNOWN
     Route: 065
  7. ENOXAPARIN SODIUM [Concomitant]
     Dosage: UNK, UNKNOWN
     Route: 065

REACTIONS (3)
  - THROMBOCYTOPENIA [None]
  - EPISTAXIS [None]
  - NEUTROPENIA [None]
